FAERS Safety Report 9680141 (Version 2)
Quarter: 2013Q4

REPORT INFORMATION
  Report Type: Spontaneous
  Country: US (occurrence: US)
  Receive Date: 20131111
  Receipt Date: 20131119
  Transmission Date: 20140711
  Serious: Yes (Other)
  Sender: FDA-Public Use
  Company Number: US-BIOGENIDEC-2013BI106468

PATIENT
  Sex: Female

DRUGS (14)
  1. AVONEX [Suspect]
     Indication: MULTIPLE SCLEROSIS
     Route: 030
  2. AVONEX [Suspect]
     Indication: MULTIPLE SCLEROSIS
     Route: 030
     Dates: start: 20090309
  3. AVONEX [Suspect]
     Indication: MULTIPLE SCLEROSIS
     Route: 030
  4. AMBIEN [Concomitant]
  5. ASPIRIN [Concomitant]
  6. B COMPLEX [Concomitant]
  7. DIOVAN [Concomitant]
  8. DULCOLAX [Concomitant]
  9. IMIQUIMOD [Concomitant]
  10. LOVAZA [Concomitant]
  11. MUCINEX [Concomitant]
  12. NEURONTIN [Concomitant]
  13. TIZANIDINE HCL [Concomitant]
  14. TOPROL XL [Concomitant]

REACTIONS (1)
  - Paget^s disease of the vulva [Unknown]
